FAERS Safety Report 8015535-2 (Version None)
Quarter: 2011Q4

REPORT INFORMATION
  Report Type: 
  Country: None (occurrence: None)
  Receive Date: 20111223
  Receipt Date: 20111213
  Transmission Date: 20120403
  Serious: Yes (Other)
  Sender: FDA-Public Use
  Company Number: FK201103003

PATIENT
  Age: 1 Year
  Sex: Male

DRUGS (2)
  1. IFOSFAMIDE [Suspect]
     Indication: BONE SARCOMA
  2. METHOTREXATE [Suspect]
     Indication: BONE SARCOMA

REACTIONS (3)
  - CONVULSION [None]
  - NEUROPATHY PERIPHERAL [None]
  - ENCEPHALOPATHY [None]
